FAERS Safety Report 6673766-8 (Version None)
Quarter: 2010Q2

REPORT INFORMATION
  Report Type: 
  Country: None (occurrence: None)
  Receive Date: 20100407
  Receipt Date: 20100325
  Transmission Date: 20101027
  Serious: Yes (Hospitalization)
  Sender: FDA-Public Use
  Company Number: 2010BM000085

PATIENT
  Age: 20 Month
  Sex: Female

DRUGS (2)
  1. NAGLAZYME [Suspect]
     Indication: MUCOPOLYSACCHARIDOSIS VI
     Dosage: 1.0MG/ML; IVDRP - 10 MG; IVDRP
     Route: 041
     Dates: start: 20100128, end: 20100201
  2. NAGLAZYME [Suspect]
     Indication: MUCOPOLYSACCHARIDOSIS VI
     Dosage: 1.0MG/ML; IVDRP - 10 MG; IVDRP
     Route: 041
     Dates: start: 20100201

REACTIONS (1)
  - METAPNEUMOVIRUS INFECTION [None]
